FAERS Safety Report 19673401 (Version 3)
Quarter: 2021Q3

REPORT INFORMATION
  Report Type: Spontaneous
  Country: NL (occurrence: NL)
  Receive Date: 20210809
  Receipt Date: 20210907
  Transmission Date: 20211014
  Serious: Yes (Other)
  Sender: FDA-Public Use
  Company Number: NL-AUROBINDO-AUR-APL-2021-033580

PATIENT
  Sex: Male
  Weight: 87 kg

DRUGS (12)
  1. ISOSORBID DINITRATE [Interacting]
     Active Substance: ISOSORBIDE DINITRATE
     Indication: ANGINA PECTORIS
     Dosage: 20 MILLIGRAM(MODIFIED?RELEASE TABLET, 20 MG (MILLIGRAMS))
     Route: 065
  2. CANDESARTAN. [Concomitant]
     Active Substance: CANDESARTAN
     Indication: PRODUCT USED FOR UNKNOWN INDICATION
     Dosage: 4 MILLIGRAM(TABLET, 4 MG (MILLIGRAM))
     Route: 065
  3. DUTASTERIDE. [Concomitant]
     Active Substance: DUTASTERIDE
     Indication: PRODUCT USED FOR UNKNOWN INDICATION
     Dosage: 0.5 MILLIGRAM(CAPSULE, 0,5 MG (MILLIGRAM))
     Route: 065
  4. ELIQUIS [Concomitant]
     Active Substance: APIXABAN
     Indication: PRODUCT USED FOR UNKNOWN INDICATION
     Dosage: 5 MILLIGRAM
     Route: 065
  5. FERROFUMARAAT [Concomitant]
     Active Substance: FERROUS FUMARATE
     Indication: PRODUCT USED FOR UNKNOWN INDICATION
     Dosage: 200 MILLIGRAM(TABLET, 200 MG)
     Route: 065
  6. METOPROLOL 200MG  PROLONGED?RELEASE TABLET [Interacting]
     Active Substance: METOPROLOL
     Indication: ARRHYTHMIA
  7. ATORVASTATINE [Concomitant]
     Active Substance: ATORVASTATIN
     Indication: PRODUCT USED FOR UNKNOWN INDICATION
     Dosage: 80 MILLIGRAM(TABLET, 80 MG (MILLIGRAM))
     Route: 065
  8. ISOSORBID DINITRATE [Interacting]
     Active Substance: ISOSORBIDE DINITRATE
     Indication: ARRHYTHMIA
  9. METOPROLOL 200MG  PROLONGED?RELEASE TABLET [Suspect]
     Active Substance: METOPROLOL
     Indication: ANGINA PECTORIS
     Dosage: 200 MILLIGRAM(TABLET 200MG)
     Route: 065
  10. OMEPRAZOLE. [Concomitant]
     Active Substance: OMEPRAZOLE
     Indication: PRODUCT USED FOR UNKNOWN INDICATION
     Dosage: 20 MILLIGRAM(CAPSULE 20MG)
     Route: 065
  11. FOSFOMYCIN [Interacting]
     Active Substance: FOSFOMYCIN
     Indication: CYSTITIS
     Dosage: 3 GRAM, EVERY OTHER DAY(3 X PER WEEK 1 DOSE OF 3000MG)
     Route: 065
     Dates: start: 20210622
  12. CLOPIDOGREL [Concomitant]
     Active Substance: CLOPIDOGREL BISULFATE
     Indication: PRODUCT USED FOR UNKNOWN INDICATION
     Dosage: 75 MILLIGRAM(TABLET, 75 MG (MILLIGRAM))
     Route: 065

REACTIONS (5)
  - Drug interaction [Unknown]
  - Arrhythmia [Not Recovered/Not Resolved]
  - Therapeutic product effect decreased [Not Recovered/Not Resolved]
  - Condition aggravated [Not Recovered/Not Resolved]
  - Angina pectoris [Not Recovered/Not Resolved]
